FAERS Safety Report 8121110-1 (Version None)
Quarter: 2012Q1

REPORT INFORMATION
  Report Type: 
  Country: None (occurrence: None)
  Receive Date: 20120208
  Receipt Date: 20120127
  Transmission Date: 20120608
  Serious: Yes (Other)
  Sender: FDA-Public Use
  Company Number: FR-BRISTOL-MYERS SQUIBB COMPANY-16373169

PATIENT
  Age: 44 Year
  Sex: Male

DRUGS (3)
  1. PRAVASTATIN [Suspect]
     Dosage: FOR TWO OR THREE YEARS, AROUND 3MONTHS AGO
  2. ALLOPURINOL [Concomitant]
  3. PANTOPRAZOLE [Concomitant]

REACTIONS (2)
  - HEPATOMEGALY [None]
  - SPLENOMEGALY [None]
